FAERS Safety Report 6761197-1 (Version None)
Quarter: 2010Q2

REPORT INFORMATION
  Report Type: 
  Country: None (occurrence: None)
  Receive Date: 20100608
  Receipt Date: 20100603
  Transmission Date: 20101027
  Serious: Yes (Life-Threatening, Hospitalization)
  Sender: FDA-Public Use
  Company Number: US-WYE-H15485610

PATIENT
  Age: 21 Year
  Sex: Male
  Weight: 54.48 kg

DRUGS (2)
  1. PRISTIQ [Suspect]
     Indication: FIBROMYALGIA
     Dosage: ^76 MG OR 50 MG DAILY AS PRESCRIBED^
     Route: 048
     Dates: start: 20091015, end: 20091015
  2. PRISTIQ [Suspect]
     Indication: DEPRESSED MOOD

REACTIONS (8)
  - AFFECT LABILITY [None]
  - ANGER [None]
  - DRUG HYPERSENSITIVITY [None]
  - HEADACHE [None]
  - INSOMNIA [None]
  - NEURALGIA [None]
  - SEROTONIN SYNDROME [None]
  - SOMNOLENCE [None]
